FAERS Safety Report 10776978 (Version 2)
Quarter: 2015Q1

REPORT INFORMATION
  Report Type: Spontaneous
  Country: US (occurrence: US)
  Receive Date: 20150209
  Receipt Date: 20150319
  Transmission Date: 20150721
  Serious: Yes (Hospitalization, Other)
  Sender: FDA-Public Use
  Company Number: US-BAYER-2015-019327

PATIENT
  Age: 21 Year
  Sex: Female
  Weight: 77.98 kg

DRUGS (3)
  1. IBUPROFEN. [Concomitant]
     Active Substance: IBUPROFEN
  2. MIRENA [Suspect]
     Active Substance: LEVONORGESTREL
     Indication: CONTRACEPTION
     Dosage: 20 MCG/24HR, CONT
     Route: 015
     Dates: start: 20111118, end: 20130716
  3. ALDARA [Concomitant]
     Active Substance: IMIQUIMOD
     Dosage: 1 APPLICATION TO AFFECTED BED 3 TIMES PERWEEK
     Dates: start: 20120120

REACTIONS (12)
  - Medical device discomfort [None]
  - Abdominal pain [None]
  - Injury [None]
  - Depression [None]
  - Anxiety [None]
  - Fear of disease [None]
  - Emotional distress [None]
  - Depressed mood [None]
  - Pelvic pain [None]
  - Uterine perforation [None]
  - Genital haemorrhage [None]
  - Device issue [None]

NARRATIVE: CASE EVENT DATE: 201111
